FAERS Safety Report 8786850 (Version 1)
Quarter: 2012Q4

REPORT INFORMATION
  Report Type: 
  Country: US (occurrence: US)
  Receive Date: 20120914
  Receipt Date: 20120914
  Transmission Date: 20130627
  Serious: No
  Sender: FDA-Public Use
  Company Number: US-009507513-1209USA004381

PATIENT

DRUGS (5)
  1. ISENTRESS [Suspect]
     Dosage: 200 mg, bid
     Route: 048
  2. EPZICOM [Suspect]
     Dosage: 1 DF, qpm
     Route: 048
  3. KLONOPIN [Concomitant]
  4. LEVETIRACETAM [Concomitant]
  5. AMLODIPINE [Concomitant]

REACTIONS (3)
  - Immune system disorder [Unknown]
  - Nasopharyngitis [Unknown]
  - Weight increased [Unknown]
